FAERS Safety Report 4862414-5 (Version None)
Quarter: 2005Q4

REPORT INFORMATION
  Report Type: 
  Country: None (occurrence: None)
  Receive Date: 20051221
  Receipt Date: 20051213
  Transmission Date: 20060501
  Serious: Yes (Life-Threatening, Hospitalization)
  Sender: FDA-Public Use
  Company Number: US-JNJFOC-20051104688

PATIENT
  Sex: Female

DRUGS (4)
  1. TOPAMAX [Suspect]
     Route: 048
  2. LAMICTAL [Concomitant]
  3. SYNTHROID [Concomitant]
  4. WELLBUTRIN [Concomitant]

REACTIONS (3)
  - COMA [None]
  - HYPONATRAEMIA [None]
  - STATUS EPILEPTICUS [None]
